FAERS Safety Report 6525251-1 (Version None)
Quarter: 2010Q1

REPORT INFORMATION
  Report Type: 
  Country: None (occurrence: None)
  Receive Date: 20100104
  Receipt Date: 20091225
  Transmission Date: 20100710
  Serious: Yes (Life-Threatening)
  Sender: FDA-Public Use
  Company Number: JP-JNJFOC-20091207450

PATIENT
  Age: 31 Year
  Sex: Female
  Weight: 45 kg

DRUGS (3)
  1. REMICADE [Suspect]
     Dosage: TOTAL NUMBER OF INFUSIONS 3
     Route: 042
  2. REMICADE [Suspect]
     Route: 042
  3. REMICADE [Suspect]
     Indication: CROHN'S DISEASE
     Dosage: RECEIVED 1 DOSE 6-7 YEARS EARLIER
     Route: 042

REACTIONS (6)
  - CHEST DISCOMFORT [None]
  - CHILLS [None]
  - DYSPNOEA [None]
  - FLUSHING [None]
  - INFUSION RELATED REACTION [None]
  - SHOCK [None]
